FAERS Safety Report 17528426 (Version 2)
Quarter: 2020Q2

REPORT INFORMATION
  Report Type: Spontaneous
  Country: JP (occurrence: JP)
  Receive Date: 20200312
  Receipt Date: 20200402
  Transmission Date: 20200713
  Serious: Yes (Hospitalization)
  Sender: FDA-Public Use
  Company Number: JP-AMGEN-JPNSP2020039476

PATIENT
  Age: 76 Year
  Sex: Female
  Weight: 35 kg

DRUGS (11)
  1. FLOMOX [Concomitant]
     Indication: OSTEOMYELITIS
     Dosage: 100 MILLIGRAM, TID
     Route: 048
     Dates: start: 20200128, end: 20200130
  2. PRALIA [Suspect]
     Active Substance: DENOSUMAB
     Indication: OSTEOPOROSIS
     Dosage: 60 MILLIGRAM, Q6MO
     Route: 058
     Dates: start: 201703, end: 20191018
  3. FLOMOX [Concomitant]
     Dosage: 100 MILLIGRAM, TID
     Route: 048
     Dates: start: 20200228, end: 20200302
  4. DENOTAS [Concomitant]
     Active Substance: CALCIUM CARBONATE\CHOLECALCIFEROL\MAGNESIUM CARBONATE
     Indication: OSTEOPOROSIS
     Dosage: 2 DF, QD
     Route: 048
     Dates: start: 201703
  5. OLMESARTAN [Concomitant]
     Active Substance: OLMESARTAN
     Dosage: 20 MG, QD
     Route: 048
  6. CYMBALTA [Concomitant]
     Active Substance: DULOXETINE HYDROCHLORIDE
     Indication: PAIN IN EXTREMITY
     Dosage: 60 MG, QD, AFTER BREAKFAST
     Route: 048
  7. LOXONIN [Concomitant]
     Active Substance: LOXOPROFEN SODIUM
     Indication: PAIN IN EXTREMITY
     Dosage: UNK, SEVERAL TIMES/DAY
  8. AMLODIPINE [Concomitant]
     Active Substance: AMLODIPINE BESYLATE
     Indication: HYPERTENSION
     Dosage: 10 MILLIGRAM, QD
     Route: 048
  9. FLOMOX [Concomitant]
     Dosage: 100 MILLIGRAM, TID
     Route: 048
     Dates: start: 20200210, end: 20200213
  10. FLOMOX [Concomitant]
     Dosage: 100 MILLIGRAM, TID
     Route: 048
     Dates: start: 20200218, end: 20200220
  11. MOHRUS PAP XR [Concomitant]
     Active Substance: KETOPROFEN
     Indication: PAIN IN EXTREMITY
     Dosage: UNK UNK, QD

REACTIONS (1)
  - Osteonecrosis of jaw [Recovering/Resolving]

NARRATIVE: CASE EVENT DATE: 2019
